FAERS Safety Report 6628456-4 (Version None)
Quarter: 2010Q1

REPORT INFORMATION
  Report Type: 
  Country: None (occurrence: None)
  Receive Date: 20100311
  Receipt Date: 20100301
  Transmission Date: 20100710
  Serious: Yes (Other)
  Sender: FDA-Public Use
  Company Number: NO-PFIZER INC-2010025670

PATIENT
  Sex: Male

DRUGS (3)
  1. SUTENT [Suspect]
     Dosage: 50 MG, UNK
     Route: 048
  2. GLUCOPHAGE [Concomitant]
  3. SELO-ZOK [Concomitant]

REACTIONS (1)
  - HYPOGLYCAEMIA [None]
